FAERS Safety Report 9932828 (Version 1)
Quarter: 2014Q1

REPORT INFORMATION
  Report Type: Spontaneous
  Country: US (occurrence: US)
  Receive Date: 20140228
  Receipt Date: 20140228
  Transmission Date: 20141002
  Serious: No
  Sender: FDA-Public Use
  Company Number: US-GLAXOSMITHKLINE-A1033095A

PATIENT
  Age: 53 Year
  Sex: Female

DRUGS (5)
  1. LAMICTAL [Suspect]
     Indication: EPILEPSY
     Dosage: 450MG PER DAY
     Route: 048
     Dates: start: 2010
  2. TOPAMAX [Concomitant]
  3. KLONOPIN [Concomitant]
  4. LEVOTHYROXINE [Concomitant]
  5. HYDROCODONE [Concomitant]

REACTIONS (1)
  - Constipation [Not Recovered/Not Resolved]
